FAERS Safety Report 10103565 (Version 2)
Quarter: 2014Q3

REPORT INFORMATION
  Report Type: Spontaneous
  Country: US (occurrence: US)
  Receive Date: 20140424
  Receipt Date: 20140922
  Transmission Date: 20150326
  Serious: Yes (Life-Threatening, Hospitalization)
  Sender: FDA-Public Use
  Company Number: US-BAYER-2014-058839

PATIENT
  Age: 19 Year
  Sex: Female
  Weight: 58.96 kg

DRUGS (16)
  1. SUMATRIPTAN [Concomitant]
     Active Substance: SUMATRIPTAN
     Indication: MIGRAINE
     Dosage: 100 MG,1 AT ONSET
     Dates: start: 201204, end: 20130416
  2. PROAIR HFA [Concomitant]
     Active Substance: ALBUTEROL SULFATE
     Indication: ASTHMA
  3. IRON [IRON] [Concomitant]
     Indication: SUPPLEMENTATION THERAPY
     Dosage: ONE DAILY
     Route: 048
  4. HYDROCODONE/ACETAMINOPHEN [Concomitant]
     Active Substance: ACETAMINOPHEN\HYDROCODONE
     Dosage: 10/325 MG TAB 1-2 TABS Q8HRS PRN
     Dates: start: 20130325, end: 20130416
  5. GLUTATHIONE [Concomitant]
     Active Substance: GLUTATHIONE
     Route: 042
  6. ADVIL [IBUPROFEN] [Concomitant]
     Active Substance: IBUPROFEN
     Dosage: PRN
  7. FISH OIL [Concomitant]
     Active Substance: FISH OIL
     Indication: SUPPLEMENTATION THERAPY
     Dosage: THREE DAILY
  8. TRAMADOL HYDROCHLORIDE. [Concomitant]
     Active Substance: TRAMADOL HYDROCHLORIDE
     Indication: PAIN
     Dosage: 50 MG, TAB 1-2 PO BID PRN
     Dates: start: 20120423, end: 20130325
  9. VENTOLIN [SALBUTAMOL] [Concomitant]
  10. QVAR [Concomitant]
     Active Substance: BECLOMETHASONE DIPROPIONATE
     Dosage: 1-2 PUFFS BID
     Route: 045
  11. GABAPENTIN. [Concomitant]
     Active Substance: GABAPENTIN
     Indication: MIGRAINE PROPHYLAXIS
     Dosage: 100 MG, UNK
     Route: 048
     Dates: start: 20130325
  12. YAZ [Suspect]
     Active Substance: DROSPIRENONE\ETHINYL ESTRADIOL
     Indication: DYSMENORRHOEA
     Dosage: UNK
     Dates: start: 20130325, end: 20130413
  13. QVAR [Concomitant]
     Active Substance: BECLOMETHASONE DIPROPIONATE
     Dosage: 40 ?G, UNK
     Dates: start: 20130405, end: 20130416
  14. ALBUTEROL. [Concomitant]
     Active Substance: ALBUTEROL
     Indication: ASTHMA
  15. VITAMIN C [ASCORBIC ACID] [Concomitant]
     Indication: SUPPLEMENTATION THERAPY
  16. ALBUTEROL. [Concomitant]
     Active Substance: ALBUTEROL
     Indication: ASTHMA EXERCISE INDUCED
     Dosage: PRN

REACTIONS (14)
  - Pain in extremity [None]
  - Pulmonary embolism [None]
  - Quality of life decreased [None]
  - Emotional distress [None]
  - Off label use [None]
  - Fear of disease [None]
  - Stress [None]
  - Deep vein thrombosis [None]
  - Anxiety [None]
  - Anhedonia [None]
  - Depression [None]
  - Injury [None]
  - Weight increased [None]
  - Dyspnoea [None]

NARRATIVE: CASE EVENT DATE: 20130413
